FAERS Safety Report 19035333 (Version 1)
Quarter: 2021Q1

REPORT INFORMATION
  Report Type: Spontaneous
  Country: ES (occurrence: ES)
  Receive Date: 20210320
  Receipt Date: 20210320
  Transmission Date: 20210420
  Serious: Yes (Hospitalization)
  Sender: FDA-Public Use
  Company Number: ES-ORGANON-O2103ESP001533

PATIENT
  Age: 56 Year
  Sex: Male

DRUGS (3)
  1. ONCASPAR [Suspect]
     Active Substance: PEGASPARGASE
     Indication: ACUTE LYMPHOCYTIC LEUKAEMIA
     Dosage: UNK, 750 U/ML SOLUTION INJECTION AND FOR PERFUSION
     Route: 042
     Dates: start: 20210210
  2. SIMVASTATIN. [Suspect]
     Active Substance: SIMVASTATIN
     Dosage: UNK
     Route: 048
     Dates: start: 20201123
  3. VILDAGLIPTINA [Suspect]
     Active Substance: VILDAGLIPTIN
     Dosage: UNK
     Route: 048
     Dates: start: 20210115, end: 20210222

REACTIONS (1)
  - Hepatitis toxic [Unknown]

NARRATIVE: CASE EVENT DATE: 20210217
